FAERS Safety Report 8001365-4 (Version None)
Quarter: 2011Q4

REPORT INFORMATION
  Report Type: 
  Country: None (occurrence: None)
  Receive Date: 20111222
  Receipt Date: 20111219
  Transmission Date: 20120403
  Serious: Yes (Death)
  Sender: FDA-Public Use
  Company Number: FR-PFIZER INC-2011308388

PATIENT
  Age: 59 Year
  Sex: Male

DRUGS (9)
  1. ERBITUX [Suspect]
     Indication: COLON CANCER METASTATIC
     Dosage: UNK
     Dates: start: 20110704
  2. EMEND [Concomitant]
  3. STABLON [Concomitant]
  4. CORDARONE [Concomitant]
  5. TANAKAN [Concomitant]
  6. CAMPTOSAR [Suspect]
     Indication: COLON CANCER METASTATIC
     Dosage: UNK
     Dates: start: 20110704
  7. PREVISCAN [Concomitant]
  8. BISOPROLOL FUMARATE [Concomitant]
  9. ALPRAZOLAM [Concomitant]

REACTIONS (1)
  - DEATH [None]
